FAERS Safety Report 21304365 (Version 1)
Quarter: 2022Q3

REPORT INFORMATION
  Report Type: Spontaneous
  Country: US (occurrence: None)
  Receive Date: 20220907
  Receipt Date: 20220907
  Transmission Date: 20221027
  Serious: No
  Sender: FDA-Public Use
  Company Number: US-ARIS GLOBAL-202107-1288

PATIENT
  Sex: Male

DRUGS (11)
  1. OXERVATE [Suspect]
     Active Substance: CENEGERMIN-BKBJ
     Indication: Neurotrophic keratopathy
     Route: 047
     Dates: start: 20210720
  2. ATIVAN [Concomitant]
     Active Substance: LORAZEPAM
  3. PRILOSEC [Concomitant]
     Active Substance: OMEPRAZOLE MAGNESIUM
     Dosage: DELAYED RELEASE TABLET
  4. PEPCID [Concomitant]
     Active Substance: FAMOTIDINE
  5. ATENOLOL [Concomitant]
     Active Substance: ATENOLOL
  6. DOXYCYCLINE HYCLATE [Concomitant]
     Active Substance: DOXYCYCLINE HYCLATE
  7. IBUPROFEN [Concomitant]
     Active Substance: IBUPROFEN
  8. ARTIFICIAL TEARS [Concomitant]
     Active Substance: GLYCERIN\HYPROMELLOSES\POLYETHYLENE GLYCOL 400
  9. MOXIFLOXACIN [Concomitant]
     Active Substance: MOXIFLOXACIN
  10. PRED FORTE [Concomitant]
     Active Substance: PREDNISOLONE ACETATE
  11. COMBIGAN [Concomitant]
     Active Substance: BRIMONIDINE TARTRATE\TIMOLOL MALEATE
     Dosage: 0.2%-0.5%

REACTIONS (10)
  - Eye pain [Unknown]
  - Vision blurred [Unknown]
  - Intentional product misuse [Unknown]
  - Photophobia [Unknown]
  - Lacrimation increased [Unknown]
  - Abnormal sensation in eye [Unknown]
  - Product storage error [Unknown]
  - Eye irritation [Unknown]
  - Rhinorrhoea [Unknown]
  - Eye irritation [Unknown]
